FAERS Safety Report 20355398 (Version 5)
Quarter: 2022Q4

REPORT INFORMATION
  Report Type: Spontaneous
  Country: JP (occurrence: JP)
  Receive Date: 20220120
  Receipt Date: 20221205
  Transmission Date: 20230113
  Serious: Yes (Hospitalization, Other)
  Sender: FDA-Public Use
  Company Number: JP-ONO-2022JP001389

PATIENT
  Age: 47 Year
  Sex: Male
  Weight: 70.3 kg

DRUGS (21)
  1. BRAFTOVI [Suspect]
     Active Substance: ENCORAFENIB
     Indication: Rectal cancer
     Dosage: 300 MG, EVERYDAY
     Route: 048
     Dates: start: 20220113, end: 20220114
  2. BRAFTOVI [Suspect]
     Active Substance: ENCORAFENIB
     Dosage: 225 MG, EVERYDAY
     Route: 048
     Dates: start: 20220120
  3. BRAFTOVI [Suspect]
     Active Substance: ENCORAFENIB
     Dosage: 150 MG, EVERYDAY
     Route: 048
     Dates: start: 20220203, end: 20220601
  4. MEKTOVI [Suspect]
     Active Substance: BINIMETINIB
     Indication: Rectal cancer
     Dosage: 45 MG, Q12H
     Route: 048
     Dates: start: 20220113, end: 20220114
  5. MEKTOVI [Suspect]
     Active Substance: BINIMETINIB
     Dosage: 30 MG, Q12H
     Route: 048
     Dates: start: 20220120
  6. MEKTOVI [Suspect]
     Active Substance: BINIMETINIB
     Dosage: 15 MG, EVERYDAY
     Route: 048
     Dates: start: 20220203, end: 20220601
  7. BEVACIZUMAB [Suspect]
     Active Substance: BEVACIZUMAB
     Indication: Rectal cancer
     Dosage: UNK
     Route: 065
     Dates: start: 20220602
  8. LONSURF [Suspect]
     Active Substance: TIPIRACIL HYDROCHLORIDE\TRIFLURIDINE
     Indication: Rectal cancer
     Dosage: UNK
     Route: 065
     Dates: start: 20220602, end: 20220602
  9. ERBITUX [Concomitant]
     Active Substance: CETUXIMAB
     Indication: Rectal cancer
     Dosage: 710 MG
     Route: 041
     Dates: start: 20220113, end: 20220113
  10. ERBITUX [Concomitant]
     Active Substance: CETUXIMAB
     Dosage: 444 MG, QW
     Route: 041
     Dates: start: 20220120, end: 20220203
  11. ERBITUX [Concomitant]
     Active Substance: CETUXIMAB
     Dosage: UNK UNK, QW
     Route: 041
     Dates: start: 20220210, end: 20220428
  12. ERBITUX [Concomitant]
     Active Substance: CETUXIMAB
     Dosage: UNK UNK, QW
     Route: 041
     Dates: start: 20220512, end: 20220526
  13. COVID-19 VACCINE [Concomitant]
     Dosage: UNK, SINGLE
     Route: 065
     Dates: start: 20220519, end: 20220519
  14. NEXIUM [Concomitant]
     Active Substance: ESOMEPRAZOLE MAGNESIUM
     Dosage: 20 MG, EVERYDAY
     Route: 048
  15. MIYA-BM [Concomitant]
     Active Substance: CLOSTRIDIUM BUTYRICUM SPORES STRAIN M-55
     Dosage: 1 DF, Q8H
     Route: 048
  16. MINOCYCLINE HYDROCHLORIDE [Concomitant]
     Active Substance: MINOCYCLINE HYDROCHLORIDE
     Dosage: 100 MG, Q12H
     Route: 048
  17. BETAMETHASONE DIPROPIONATE [Concomitant]
     Active Substance: BETAMETHASONE DIPROPIONATE
     Dosage: UNK, Q12H (LOTION (EXCEPT LOTION FOR EYE))
     Route: 061
  18. SODIUM CHLORIDE [Concomitant]
     Active Substance: SODIUM CHLORIDE
     Dosage: 600 MILLILITER, QW
     Route: 041
     Dates: start: 20220113, end: 20220203
  19. POLARAMINE [Concomitant]
     Active Substance: DEXCHLORPHENIRAMINE MALEATE
     Dosage: 5 MG, QW
     Route: 041
     Dates: start: 20220113, end: 20220203
  20. DEXAMETHASONE SODIUM PHOSPHATE [Concomitant]
     Active Substance: DEXAMETHASONE SODIUM PHOSPHATE
     Dosage: 6.6 MG, QW
     Route: 041
     Dates: start: 20220113, end: 20220203
  21. HEPARIN [Concomitant]
     Active Substance: HEPARIN SODIUM
     Dosage: 1 DF, QW
     Route: 041
     Dates: start: 20220113, end: 20220203

REACTIONS (4)
  - Serous retinal detachment [Recovered/Resolved]
  - Mechanical ileus [Unknown]
  - Hepatic function abnormal [Unknown]
  - Neutrophil count decreased [Unknown]

NARRATIVE: CASE EVENT DATE: 20220114
